FAERS Safety Report 10226127 (Version 1)
Quarter: 2014Q2

REPORT INFORMATION
  Report Type: Spontaneous
  Country: US (occurrence: US)
  Receive Date: 20140609
  Receipt Date: 20140609
  Transmission Date: 20141212
  Serious: Yes (Hospitalization)
  Sender: FDA-Public Use
  Company Number: US-ASTELLAS-2013US009091

PATIENT
  Age: 36 Year
  Sex: Female
  Weight: 109 kg

DRUGS (1)
  1. PROGRAF [Suspect]
     Indication: RENAL TRANSPLANT
     Dosage: 7 MG (4 MG IN MORNING AND 3 MG IN EVENING)
     Route: 048
     Dates: start: 20111104

REACTIONS (2)
  - Infection [Recovered/Resolved]
  - Abdominal pain [Recovered/Resolved]
